FAERS Safety Report 13264226 (Version 1)
Quarter: 2017Q1

REPORT INFORMATION
  Report Type: Spontaneous
  Country: US (occurrence: US)
  Receive Date: 20170223
  Receipt Date: 20170223
  Transmission Date: 20170428
  Serious: Yes (Hospitalization, Other)
  Sender: FDA-Public Use
  Company Number: None

PATIENT
  Age: 34 Year
  Sex: Male
  Weight: 108.96 kg

DRUGS (18)
  1. AMLODIPINE/BENAZEPRI [Concomitant]
  2. PANTOPRAZOLE SODIUM. [Concomitant]
     Active Substance: PANTOPRAZOLE SODIUM
  3. PERCOCET (OXYCODONE, ACETAMINOPHEN) [Concomitant]
  4. INVEGA MAINTENA [Concomitant]
  5. TYLENOL [Concomitant]
     Active Substance: ACETAMINOPHEN
  6. DONUT CUSHION (FOR SITTING) [Concomitant]
  7. LEVOFLOXACIN. [Concomitant]
     Active Substance: LEVOFLOXACIN
  8. SIMETHICONE (DIMETHICONE) [Concomitant]
     Active Substance: DIMETHICONE
  9. COLACE [Concomitant]
     Active Substance: DOCUSATE SODIUM
  10. MYLANTA [Concomitant]
     Active Substance: ALUMINUM HYDROXIDE\DIMETHICONE\MAGNESIUM HYDROXIDE
  11. ACETAMINOPHEN/CODEINE 3 [Concomitant]
  12. KETOROLAC TROMETHAMINE. [Concomitant]
     Active Substance: KETOROLAC TROMETHAMINE
  13. BACLOFEN. [Concomitant]
     Active Substance: BACLOFEN
  14. LEVETIRACETAM. [Concomitant]
     Active Substance: LEVETIRACETAM
  15. VITAMIN D [Concomitant]
     Active Substance: CHOLECALCIFEROL
  16. IBUPROFEN. [Concomitant]
     Active Substance: IBUPROFEN
  17. SAPHRIS [Suspect]
     Active Substance: ASENAPINE MALEATE
     Indication: SCHIZOAFFECTIVE DISORDER
     Dosage: BU MOUTH (UNDER TONGUE)
     Route: 048
     Dates: end: 20161105
  18. SUPPORT CONE (FOR WALKING) [Concomitant]

REACTIONS (3)
  - Activities of daily living impaired [None]
  - Gait disturbance [None]
  - Scrotal inflammation [None]

NARRATIVE: CASE EVENT DATE: 20151111
